FAERS Safety Report 10233844 (Version 2)
Quarter: 2014Q2

REPORT INFORMATION
  Report Type: Spontaneous
  Country: CH (occurrence: None)
  Receive Date: 20140610
  Receipt Date: 20140624
  Transmission Date: 20141212
  Serious: Yes (Other)
  Sender: FDA-Public Use
  Company Number: 20140308

PATIENT
  Age: 49 Year
  Sex: Female
  Weight: 62 kg

DRUGS (1)
  1. FERINJECT [Suspect]
     Indication: IRON DEFICIENCY ANAEMIA
     Route: 041
     Dates: start: 20140410, end: 20140410

REACTIONS (7)
  - Malaise [None]
  - Cardiospasm [None]
  - Vision blurred [None]
  - Headache [None]
  - Nausea [None]
  - Palpitations [None]
  - Hyperhidrosis [None]
